FAERS Safety Report 12922181 (Version 1)
Quarter: 2016Q4

REPORT INFORMATION
  Report Type: Spontaneous
  Country: US (occurrence: US)
  Receive Date: 20161108
  Receipt Date: 20161108
  Transmission Date: 20170207
  Serious: Yes (Other)
  Sender: FDA-Public Use
  Company Number: US-PFIZER INC-2016517418

PATIENT
  Sex: Female

DRUGS (2)
  1. LYRICA [Suspect]
     Active Substance: PREGABALIN
     Indication: SPINAL CORD INJURY
     Dosage: 75 MG, 1X/DAY, (ONCE IN THE MORNING)
  2. LYRICA [Suspect]
     Active Substance: PREGABALIN
     Indication: FIBROMYALGIA
     Dosage: 50 MG, UNK

REACTIONS (7)
  - Hypoaesthesia [Unknown]
  - Somnolence [Unknown]
  - Migraine [Unknown]
  - Anxiety [Unknown]
  - Aggression [Unknown]
  - Bipolar disorder [Unknown]
  - Circumstance or information capable of leading to medication error [Unknown]
